FAERS Safety Report 15636079 (Version 1)
Quarter: 2018Q4

REPORT INFORMATION
  Report Type: Spontaneous
  Country: US (occurrence: US)
  Receive Date: 20181120
  Receipt Date: 20181120
  Transmission Date: 20190205
  Serious: No
  Sender: FDA-Public Use
  Company Number: US-JNJFOC-20181044296

PATIENT
  Age: 69 Year
  Sex: Female
  Weight: 72.58 kg

DRUGS (2)
  1. MENS ROGAINE EXTRA STRENGTH [Suspect]
     Active Substance: MINOXIDIL
     Route: 061
  2. MENS ROGAINE EXTRA STRENGTH [Suspect]
     Active Substance: MINOXIDIL
     Indication: ALOPECIA
     Dosage: MORE THAN 1 ML TWICE DAILY
     Route: 061
     Dates: end: 20181028

REACTIONS (5)
  - Alopecia [Recovered/Resolved]
  - Off label use [Unknown]
  - Incorrect product administration duration [Unknown]
  - Product use issue [Unknown]
  - Overdose [Unknown]

NARRATIVE: CASE EVENT DATE: 20181028
